FAERS Safety Report 9546965 (Version 3)
Quarter: 2014Q2

REPORT INFORMATION
  Report Type: Report from Study
  Country: AU (occurrence: AU)
  Receive Date: 20130924
  Receipt Date: 20140417
  Transmission Date: 20141212
  Serious: Yes (Other)
  Sender: FDA-Public Use
  Company Number: AU-ROCHE-1277710

PATIENT
  Age: 39 Year
  Sex: Female

DRUGS (2)
  1. ACTEMRA [Suspect]
     Indication: RHEUMATOID ARTHRITIS
     Route: 042
     Dates: start: 20130917
  2. ACTEMRA [Suspect]
     Route: 042

REACTIONS (3)
  - Facial pain [Recovered/Resolved]
  - Hypersensitivity [Not Recovered/Not Resolved]
  - Facial pain [Not Recovered/Not Resolved]
